FAERS Safety Report 7527292-4 (Version None)
Quarter: 2011Q2

REPORT INFORMATION
  Report Type: 
  Country: None (occurrence: None)
  Receive Date: 20110603
  Receipt Date: 20110603
  Transmission Date: 20111010
  Serious: Yes (Other)
  Sender: FDA-Public Use
  Company Number: None

PATIENT
  Age: 59 Year
  Sex: Female
  Weight: 52.6173 kg

DRUGS (1)
  1. ATRIPLA [Suspect]
     Indication: HIV INFECTION
     Dosage: 1 TABLET DAILY PO
     Route: 048
     Dates: start: 20080110, end: 20110516

REACTIONS (3)
  - CD4 LYMPHOCYTES DECREASED [None]
  - PRODUCT COUNTERFEIT [None]
  - BLOOD HIV RNA INCREASED [None]
